FAERS Safety Report 5938236-0 (Version None)
Quarter: 2008Q4

REPORT INFORMATION
  Report Type: 
  Country: None (occurrence: None)
  Receive Date: 20081031
  Receipt Date: 20081020
  Transmission Date: 20090506
  Serious: Yes (Hospitalization)
  Sender: FDA-Public Use
  Company Number: FR-PFIZER INC-2008089431

PATIENT
  Sex: Female

DRUGS (2)
  1. ZOLOFT [Suspect]
     Indication: MAJOR DEPRESSION
     Route: 048
  2. SPAGULAX [Suspect]
     Indication: CONSTIPATION
     Dosage: TEXT:2 DOSAGE FORMS
     Route: 048
     Dates: start: 20080815, end: 20080907

REACTIONS (4)
  - ARTHRALGIA [None]
  - BLOOD PRESSURE DIASTOLIC INCREASED [None]
  - NEURALGIA [None]
  - VASCULITIS [None]
